FAERS Safety Report 10794102 (Version 3)
Quarter: 2015Q1

REPORT INFORMATION
  Report Type: Spontaneous
  Country: JP (occurrence: JP)
  Receive Date: 20150213
  Receipt Date: 20150309
  Transmission Date: 20150721
  Serious: Yes (Hospitalization, Other)
  Sender: FDA-Public Use
  Company Number: US-ASTRAZENECA-2014SE92052

PATIENT
  Age: 60 Year
  Sex: Male
  Weight: 88 kg

DRUGS (17)
  1. FORXIGA [Suspect]
     Active Substance: DAPAGLIFLOZIN
     Indication: TYPE 2 DIABETES MELLITUS
     Route: 048
     Dates: start: 20140902, end: 20141118
  2. GASTER [Concomitant]
     Active Substance: FAMOTIDINE
     Indication: GASTRITIS
     Route: 048
     Dates: start: 20141118, end: 20141122
  3. METGLUCO [Concomitant]
     Active Substance: METFORMIN HYDROCHLORIDE
     Indication: TYPE 2 DIABETES MELLITUS
     Route: 048
     Dates: start: 20121116, end: 20141117
  4. METGLUCO [Concomitant]
     Active Substance: METFORMIN HYDROCHLORIDE
     Indication: TYPE 2 DIABETES MELLITUS
     Route: 048
     Dates: start: 20141118, end: 20141122
  5. AVAPRO [Concomitant]
     Active Substance: IRBESARTAN
     Indication: HYPERTENSION
     Route: 048
     Dates: start: 20141120, end: 20141122
  6. BYDUREON [Suspect]
     Active Substance: EXENATIDE
     Indication: TYPE 2 DIABETES MELLITUS
     Route: 058
     Dates: start: 20130612, end: 20141122
  7. LIVALO [Concomitant]
     Active Substance: PITAVASTATIN CALCIUM
     Indication: HYPERLIPIDAEMIA
     Route: 048
     Dates: start: 20141118, end: 20141122
  8. PARIET [Concomitant]
     Active Substance: RABEPRAZOLE SODIUM
     Indication: GASTROOESOPHAGEAL REFLUX DISEASE
     Route: 048
     Dates: start: 20120725
  9. MUCOSTA [Concomitant]
     Active Substance: REBAMIPIDE
     Indication: GASTRITIS
     Route: 048
     Dates: start: 20141118, end: 20141122
  10. TENORMIN [Concomitant]
     Active Substance: ATENOLOL
     Indication: ARRHYTHMIA
     Route: 048
     Dates: start: 20141118, end: 20141122
  11. MAGLAX [Concomitant]
     Active Substance: MAGNESIUM OXIDE
     Indication: CONSTIPATION
     Route: 048
     Dates: start: 20141118, end: 20141122
  12. TAURINE [Concomitant]
     Active Substance: TAURINE
     Indication: HEPATIC FUNCTION ABNORMAL
     Route: 048
     Dates: start: 20130723
  13. GLYCYRON [Concomitant]
     Active Substance: AMMONIUM GLYCYRRHIZATE\GLYCINE\METHIONINE
     Indication: HEPATITIS
     Route: 048
     Dates: start: 20141118, end: 20141122
  14. AMARYL [Concomitant]
     Active Substance: GLIMEPIRIDE
     Indication: TYPE 2 DIABETES MELLITUS
     Route: 048
     Dates: start: 20130416, end: 20141122
  15. TALION [Concomitant]
     Active Substance: BEPOTASTINE
     Indication: RHINITIS ALLERGIC
     Route: 048
     Dates: start: 20141118, end: 20141122
  16. URSO [Concomitant]
     Active Substance: URSODIOL
     Indication: HEPATITIS
     Route: 048
     Dates: start: 20141119, end: 20141122
  17. ATELEC [Concomitant]
     Active Substance: CILNIDIPINE
     Indication: HYPERTENSION
     Route: 048
     Dates: start: 20141120, end: 20141122

REACTIONS (10)
  - White blood cell count increased [Unknown]
  - Diabetes mellitus [Unknown]
  - Urine ketone body [Unknown]
  - Glycosylated haemoglobin increased [Unknown]
  - Cerebral infarction [Recovered/Resolved]
  - Weight loss poor [Unknown]
  - Hepatitis [Unknown]
  - Urobilinogen urine increased [Unknown]
  - Glucose urine present [Unknown]
  - Protein urine present [Unknown]

NARRATIVE: CASE EVENT DATE: 20140808
